FAERS Safety Report 5950778-0 (Version None)
Quarter: 2008Q4

REPORT INFORMATION
  Report Type: 
  Country: None (occurrence: None)
  Receive Date: 20081112
  Receipt Date: 20081105
  Transmission Date: 20090506
  Serious: Yes (Hospitalization)
  Sender: FDA-Public Use
  Company Number: US-B.I. PHARMACEUTICALS,INC./RIDGEFIELD-2008-BP-15768BP

PATIENT
  Age: 96 Year
  Sex: Male
  Weight: 69 kg

DRUGS (6)
  1. FLOMAX [Suspect]
     Dates: end: 20081001
  2. TOPROL-XL [Concomitant]
     Dosage: 2MG
  3. PROSCAR [Concomitant]
     Dosage: 5MG
  4. LASIX [Concomitant]
     Dosage: 20MG
  5. ZOCOR [Concomitant]
     Dosage: 10MG
  6. NORVASC [Concomitant]
     Dosage: 2.5MG

REACTIONS (3)
  - HIP FRACTURE [None]
  - ILEUS [None]
  - VOLVULUS [None]
